FAERS Safety Report 8113050-9 (Version None)
Quarter: 2012Q1

REPORT INFORMATION
  Report Type: 
  Country: None (occurrence: None)
  Receive Date: 20120203
  Receipt Date: 20120131
  Transmission Date: 20120608
  Serious: Yes (Other)
  Sender: FDA-Public Use
  Company Number: US-GLAXOSMITHKLINE-A0945464A

PATIENT
  Sex: Male
  Weight: 170.5 kg

DRUGS (7)
  1. LOPID [Concomitant]
  2. HYDROCHLOROTHIAZIDE [Concomitant]
  3. CRESTOR [Concomitant]
  4. AVANDIA [Suspect]
     Indication: DIABETES MELLITUS
     Dosage: 8MG PER DAY
     Route: 048
     Dates: start: 20040101, end: 20100101
  5. ZOLOFT [Concomitant]
  6. LISINOPRIL [Concomitant]
  7. METFORMIN HCL [Concomitant]

REACTIONS (2)
  - HEART INJURY [None]
  - BUNDLE BRANCH BLOCK RIGHT [None]
